FAERS Safety Report 4311042-9 (Version None)
Quarter: 2004Q1

REPORT INFORMATION
  Report Type: 
  Country: None (occurrence: None)
  Receive Date: 20040303
  Receipt Date: 20040303
  Transmission Date: 20041129
  Serious: Yes (Hospitalization)
  Sender: FDA-Public Use
  Company Number: None

PATIENT
  Age: 79 Year
  Sex: Female

DRUGS (14)
  1. LAMOTRIGINE [Suspect]
     Indication: CONVULSION
     Dosage: 100 MG TWICE DAIL ORAL
     Route: 048
  2. ZOLIPIDEM [Concomitant]
  3. ALENDRONATE SODIUM [Concomitant]
  4. PROMETHAZINE [Concomitant]
  5. LEVOFLOXACIN [Concomitant]
  6. RALOXIFENE HCL [Concomitant]
  7. DIPHENHYDRAMINE HCL [Concomitant]
  8. LORAZEPAM [Concomitant]
  9. VALDECOXIB [Concomitant]
  10. LEVOTHYROXINE SODIUM [Concomitant]
  11. ASPIRIN [Concomitant]
  12. LOPERAMIDE HCL [Concomitant]
  13. CIPROFLOXACIN [Concomitant]
  14. OPTHALAMIC SOLUTION [Concomitant]

REACTIONS (16)
  - CONJUNCTIVITIS [None]
  - DIARRHOEA [None]
  - EOSINOPHILIA [None]
  - EOSINOPHILS URINE [None]
  - HAEMOPTYSIS [None]
  - MALAISE [None]
  - PRODUCTIVE COUGH [None]
  - PYREXIA [None]
  - RASH MACULO-PAPULAR [None]
  - RASH MORBILLIFORM [None]
  - RASH PAPULAR [None]
  - RASH PRURITIC [None]
  - SPUTUM DISCOLOURED [None]
  - STEVENS-JOHNSON SYNDROME [None]
  - SWELLING FACE [None]
  - SWOLLEN TONGUE [None]
